FAERS Safety Report 7969274-4 (Version None)
Quarter: 2011Q4

REPORT INFORMATION
  Report Type: 
  Country: None (occurrence: None)
  Receive Date: 20111209
  Receipt Date: 20111128
  Transmission Date: 20120403
  Serious: Yes (Death, Hospitalization, Other)
  Sender: FDA-Public Use
  Company Number: DK-ROCHE-801852

PATIENT
  Sex: Male

DRUGS (9)
  1. CYCLOPHOSPHAMIDE [Suspect]
     Indication: HAEMOLYSIS
  2. MABTHERA [Suspect]
     Route: 042
     Dates: start: 20090628, end: 20091117
  3. CYCLOPHOSPHAMIDE [Suspect]
     Indication: CHRONIC LYMPHOCYTIC LEUKAEMIA
     Route: 048
     Dates: start: 20070220, end: 20070529
  4. CHLORAMBUCIL [Concomitant]
     Dates: start: 20090602, end: 20110816
  5. MABTHERA [Suspect]
     Indication: CHRONIC LYMPHOCYTIC LEUKAEMIA REFRACTORY
     Route: 042
     Dates: start: 20070220, end: 20070314
  6. PREDNISOLONE [Concomitant]
     Indication: HAEMOLYSIS
     Route: 048
     Dates: start: 20030416, end: 20030910
  7. MABTHERA [Suspect]
     Indication: HAEMOLYSIS
     Dosage: EVERY 2 WEEKS, THEN MAINTAINANCE EVERY 2 MONTHS
     Route: 042
     Dates: start: 20100714, end: 20110719
  8. FLUDARABINE PHOSPHATE [Suspect]
     Indication: CHRONIC LYMPHOCYTIC LEUKAEMIA
     Route: 065
  9. CHLORAMBUCIL [Concomitant]
     Indication: CHRONIC LYMPHOCYTIC LEUKAEMIA
     Route: 048
     Dates: start: 20021104, end: 20040906

REACTIONS (5)
  - MUSCULAR WEAKNESS [None]
  - PROGRESSIVE MULTIFOCAL LEUKOENCEPHALOPATHY [None]
  - COORDINATION ABNORMAL [None]
  - TREMOR [None]
  - PARAESTHESIA [None]
